FAERS Safety Report 23335770 (Version 1)
Quarter: 2023Q4

REPORT INFORMATION
  Report Type: Report from Study
  Country: CA (occurrence: None)
  Receive Date: 20231225
  Receipt Date: 20231225
  Transmission Date: 20240110
  Serious: Yes (Death, Other)
  Sender: FDA-Public Use
  Company Number: 2023A292640

PATIENT
  Age: 24383 Day
  Sex: Male

DRUGS (9)
  1. TAGRISSO [Suspect]
     Active Substance: OSIMERTINIB
     Indication: Metastatic neoplasm
     Route: 048
     Dates: start: 20211001
  2. ANDROGEL [Concomitant]
     Active Substance: TESTOSTERONE
     Dosage: 1 PACKET ONCE A WEEK
  3. VITAMIN B12 [Concomitant]
     Active Substance: CYANOCOBALAMIN
     Dosage: 1 PACKET ONCE A WEEK
  4. JARDIANCE [Concomitant]
     Active Substance: EMPAGLIFLOZIN
  5. METFORMIN [Concomitant]
     Active Substance: METFORMIN HYDROCHLORIDE
  6. PREVACID [Concomitant]
     Active Substance: LANSOPRAZOLE
  7. MINT - GLYCLAZIDE [Concomitant]
  8. REPATHA [Concomitant]
     Active Substance: EVOLOCUMAB
     Dosage: EVERY 2ND MONDAY
  9. TELMISARTAN [Concomitant]
     Active Substance: TELMISARTAN
     Dosage: EVERY 2ND MONDAY

REACTIONS (1)
  - Death [Fatal]

NARRATIVE: CASE EVENT DATE: 20230209
